FAERS Safety Report 8273608-3 (Version None)
Quarter: 2012Q2

REPORT INFORMATION
  Report Type: 
  Country: None (occurrence: None)
  Receive Date: 20120411
  Receipt Date: 20120131
  Transmission Date: 20120825
  Serious: No
  Sender: FDA-Public Use
  Company Number: US-TEVA-320165USA

PATIENT
  Sex: Female
  Weight: 65.83 kg

DRUGS (9)
  1. LEXAPRO [Concomitant]
     Indication: DEPRESSION
     Route: 048
  2. OXYCONTIN [Concomitant]
     Indication: PAIN
     Dosage: PRN/TID
     Route: 048
  3. BACIOFEN [Concomitant]
     Indication: MUSCLE SPASMS
     Dosage: TAKES 20 MG TID
     Route: 048
  4. XANAX [Concomitant]
     Indication: ANXIETY
     Dosage: TID/PRN
     Route: 048
  5. COPAXONE [Concomitant]
     Indication: MULTIPLE SCLEROSIS
     Route: 058
     Dates: start: 20090101
  6. LYRICA [Concomitant]
     Indication: NERVE INJURY
     Dosage: QID
     Route: 048
  7. PERCOCET [Concomitant]
     Indication: BREAKTHROUGH PAIN
     Dosage: Q4HRS PRN
     Route: 048
  8. NUVIGIL [Suspect]
     Indication: FATIGUE
     Route: 048
     Dates: start: 20100101, end: 20120128
  9. AMITIZA [Concomitant]
     Indication: GASTROINTESTINAL MOTILITY DISORDER
     Route: 048

REACTIONS (5)
  - PULSE ABNORMAL [None]
  - OEDEMA PERIPHERAL [None]
  - DYSPHONIA [None]
  - MUSCLE SPASMS [None]
  - DYSPNOEA [None]
